FAERS Safety Report 5047933-3 (Version None)
Quarter: 2006Q3

REPORT INFORMATION
  Report Type: 
  Country: None (occurrence: None)
  Receive Date: 20060703
  Receipt Date: 20060621
  Transmission Date: 20061208
  Serious: Yes (Hospitalization)
  Sender: FDA-Public Use
  Company Number: THYR-10318

PATIENT
  Age: 39 Year
  Sex: Female

DRUGS (8)
  1. THYROGEN [Suspect]
     Indication: DIAGNOSTIC PROCEDURE
     Dosage: 0.9 MG ONCE IM
     Route: 030
     Dates: start: 20060619, end: 20060620
  2. DEMEROL [Concomitant]
  3. PHENERGAN HCL [Concomitant]
  4. SYNTHROID [Concomitant]
  5. DURAGESIC-100 [Concomitant]
  6. NEURONTIN [Concomitant]
  7. ACIPHEX [Concomitant]
  8. MS CONTIN [Concomitant]

REACTIONS (1)
  - ASTHENIA [None]
